FAERS Safety Report 11441465 (Version 2)
Quarter: 2015Q3

REPORT INFORMATION
  Report Type: Spontaneous
  Country: US (occurrence: US)
  Receive Date: 20150821
  Receipt Date: 20150831
  Transmission Date: 20151125
  Serious: No
  Sender: FDA-Public Use
  Company Number: US-ELI_LILLY_AND_COMPANY-US200711000188

PATIENT
  Age: 46 Year
  Sex: Female

DRUGS (5)
  1. CYMBALTA [Suspect]
     Active Substance: DULOXETINE HYDROCHLORIDE
     Indication: DEPRESSION
     Dosage: 20 MG, 2/D
     Dates: start: 200708
  2. CYMBALTA [Suspect]
     Active Substance: DULOXETINE HYDROCHLORIDE
     Dosage: 30 MG, 2/D
     Dates: end: 20080112
  3. CYMBALTA [Suspect]
     Active Substance: DULOXETINE HYDROCHLORIDE
     Dosage: 30 MG, EACH EVENING
     Dates: start: 2008
  4. THYROID [Concomitant]
     Active Substance: LEVOTHYROXINE\LIOTHYRONINE
     Indication: HYPOTHYROIDISM
  5. VITAMINS [Concomitant]
     Active Substance: VITAMINS

REACTIONS (15)
  - Dizziness [Unknown]
  - Insomnia [Unknown]
  - Drug ineffective [Recovered/Resolved]
  - Night sweats [Recovered/Resolved]
  - Anxiety [Unknown]
  - Crying [Recovered/Resolved]
  - Feeling abnormal [Recovered/Resolved]
  - Malaise [Recovered/Resolved]
  - Pain [Recovered/Resolved]
  - Nausea [Unknown]
  - Feeling abnormal [Unknown]
  - Malaise [Unknown]
  - Sedation [Unknown]
  - Nightmare [Unknown]
  - Headache [Recovered/Resolved]

NARRATIVE: CASE EVENT DATE: 200709
